FAERS Safety Report 6456338-X (Version None)
Quarter: 2009Q4

REPORT INFORMATION
  Report Type: 
  Country: None (occurrence: None)
  Receive Date: 20091125
  Receipt Date: 20091115
  Transmission Date: 20100525
  Serious: Yes (Death, Hospitalization, Other)
  Sender: FDA-Public Use
  Company Number: FI-ROCHE-669697

PATIENT
  Age: 21 Year
  Sex: Male

DRUGS (2)
  1. RIVATRIL [Suspect]
     Indication: ANXIETY
     Route: 048
  2. OPIOID ANALGESIC NOS [Concomitant]
     Dosage: DRUG NAME REPORTED AS UNSPECIFIED OPIOIDS.

REACTIONS (5)
  - BRAIN INJURY [None]
  - DRUG DEPENDENCE [None]
  - DRUG TOLERANCE INCREASED [None]
  - SUICIDE ATTEMPT [None]
  - WITHDRAWAL SYNDROME [None]
